FAERS Safety Report 6268177-3 (Version None)
Quarter: 2009Q3

REPORT INFORMATION
  Report Type: 
  Country: None (occurrence: None)
  Receive Date: 20090715
  Receipt Date: 20090706
  Transmission Date: 20100115
  Serious: Yes (Other)
  Sender: FDA-Public Use
  Company Number: IT-RANBAXY-2009RR-25443

PATIENT
  Sex: Male

DRUGS (1)
  1. PARACETAMOL [Suspect]

REACTIONS (1)
  - FACE OEDEMA [None]
